FAERS Safety Report 7133888-4 (Version None)
Quarter: 2010Q4

REPORT INFORMATION
  Report Type: 
  Country: None (occurrence: None)
  Receive Date: 20101203
  Receipt Date: 20101115
  Transmission Date: 20110411
  Serious: Yes (Hospitalization)
  Sender: FDA-Public Use
  Company Number: US-BAYER-201030646NA

PATIENT

DRUGS (8)
  1. YAZ [Suspect]
     Route: 048
     Dates: start: 20080401, end: 20080601
  2. YASMIN [Suspect]
     Route: 048
     Dates: start: 20080401, end: 20080601
  3. OCELLA [Suspect]
     Route: 048
     Dates: start: 20080401, end: 20080601
  4. LOESTRIN 1.5/30 [Concomitant]
     Dates: start: 20080601, end: 20090101
  5. ETHINYL ESTRADIOL AND NORETHINDRONE [Concomitant]
     Dates: start: 20080601
  6. MICROGESTIN 1.5/30 [Concomitant]
     Dates: start: 20081001
  7. LEVORA 0.15/30-21 [Concomitant]
     Dates: start: 20070323
  8. AMITRIPTYLINE HYDROCHLORIDE [Concomitant]
     Dates: start: 20070323

REACTIONS (3)
  - CHOLECYSTECTOMY [None]
  - GALLBLADDER INJURY [None]
  - MENSTRUATION IRREGULAR [None]
